FAERS Safety Report 7056992-8 (Version None)
Quarter: 2010Q4

REPORT INFORMATION
  Report Type: 
  Country: None (occurrence: None)
  Receive Date: 20101021
  Receipt Date: 20101021
  Transmission Date: 20110411
  Serious: Yes (Hospitalization)
  Sender: FDA-Public Use
  Company Number: None

PATIENT
  Age: 55 Year
  Sex: Male
  Weight: 95.709 kg

DRUGS (19)
  1. FAMVIR [Suspect]
  2. AMARYL [Suspect]
     Dosage: ONCE A DAY
     Route: 048
  3. ASPIRIN [Suspect]
     Dosage: ONCE A DAY
     Route: 048
  4. CARBOPLATIN [Suspect]
     Indication: CHEMOTHERAPY
     Dosage: EVERY 21 DAYS  AUC 6
     Route: 042
  5. EMEND [Suspect]
     Indication: NAUSEA
     Dosage: BI-PAK A DAY, ORAL, DAY 2+3 OF CHEMO
     Route: 048
  6. DECADRON [Concomitant]
     Dosage: 10MG, DAY 1,2,3 EVERY 21 DAYS
     Route: 042
  7. ETOPOSIDE [Suspect]
     Indication: CHEMOTHERAPY
     Dosage: IV, DAY 1,2,3 EVERY 21 DAYS
     Route: 042
  8. FAMVIR [Concomitant]
     Dosage: ORAL TAB, , 1 THREE TMES A DAY
     Route: 048
     Dates: start: 20101015
  9. IMODIUM A-D [Concomitant]
     Indication: DIARRHOEA
     Dosage: 20ORALLY AT FIRST DIARRHEA STOOL THEN EVERY 2 HOURS FOR 4 DAYS
  10. KYTRIL [Concomitant]
     Indication: NAUSEA
     Dosage: 1 MG /ML , INTRAVENOUS SOLUTION,DAY 1,2,3 EVERY 21 DAYS
     Route: 042
  11. LOPID [Concomitant]
     Dosage: ORAL TABLET,TWICE A DAY
     Route: 048
  12. NEXIUM [Concomitant]
     Indication: DYSPEPSIA
     Dosage: ORAL, ONCE A DAY
  13. NIASPAN [Concomitant]
     Dosage: ORAL,AT BED TIME
  14. LOVAZA [Concomitant]
     Dosage: ORAL, TWICE A DAY
     Route: 048
  15. PHENERGAN [Concomitant]
     Indication: NAUSEA
     Dosage: 25 MG,ORAL TABLET,EVERY 6-8 HRS AS NEEDED
     Route: 048
  16. SPIRIVA [Concomitant]
     Dosage: 18 MCG, INHALATION CAPSULE, ONCE A DAY
  17. ZOCOR [Concomitant]
     Indication: BLOOD CHOLESTEROL
     Dosage: ORAL TABLET, AT BED TIME
     Route: 048
  18. ZOFRAN [Concomitant]
     Indication: NAUSEA
     Dosage: IV, DAY 2 OF EACH CHEMO CYCLE
     Route: 042
  19. ZOFRAN [Concomitant]
     Indication: NAUSEA
     Dosage: EVERY 8-12 HRS FOR 3 DAYS, START DAY 2
     Route: 048

REACTIONS (4)
  - COUGH [None]
  - DRY MOUTH [None]
  - PYREXIA [None]
  - WHITE BLOOD CELL COUNT DECREASED [None]
